FAERS Safety Report 7934950-6 (Version None)
Quarter: 2011Q4

REPORT INFORMATION
  Report Type: 
  Country: None (occurrence: None)
  Receive Date: 20111122
  Receipt Date: 20111115
  Transmission Date: 20120403
  Serious: Yes (Hospitalization, Other)
  Sender: FDA-Public Use
  Company Number: GB-GENZYME-CLOF-1001902

PATIENT
  Sex: Male

DRUGS (2)
  1. EVOLTRA [Suspect]
     Dosage: 2ND COURSE OF LOW DOSE
     Route: 065
     Dates: start: 20070820
  2. EVOLTRA [Suspect]
     Indication: ACUTE LEUKAEMIA
     Dosage: 1ST COURSE
     Route: 065
     Dates: start: 20070716

REACTIONS (3)
  - PERIORBITAL HAEMATOMA [None]
  - BLOOD COUNT ABNORMAL [None]
  - SWOLLEN TONGUE [None]
